FAERS Safety Report 13333037 (Version 1)
Quarter: 2017Q1

REPORT INFORMATION
  Report Type: Spontaneous
  Country: US (occurrence: US)
  Receive Date: 20170313
  Receipt Date: 20170313
  Transmission Date: 20170428
  Serious: Yes (Other)
  Sender: FDA-Public Use
  Company Number: US-ELI_LILLY_AND_COMPANY-US201703003038

PATIENT
  Age: 69 Year
  Sex: Female

DRUGS (2)
  1. CARBOPLATIN. [Suspect]
     Active Substance: CARBOPLATIN
     Indication: NON-SMALL CELL LUNG CANCER
     Dosage: UNK UNK, UNKNOWN
     Route: 065
     Dates: start: 20151201
  2. ALIMTA [Suspect]
     Active Substance: PEMETREXED DISODIUM
     Indication: NON-SMALL CELL LUNG CANCER
     Dosage: 800 MG, UNKNOWN
     Route: 065
     Dates: start: 20151201, end: 20160819

REACTIONS (11)
  - Diarrhoea [Unknown]
  - Decreased appetite [Unknown]
  - Rash [Unknown]
  - Fatigue [Unknown]
  - Bone marrow failure [Unknown]
  - Blister [Unknown]
  - Off label use [Unknown]
  - Anaemia [Unknown]
  - Dyspnoea exertional [Unknown]
  - Depression [Unknown]
  - Oedema peripheral [Unknown]

NARRATIVE: CASE EVENT DATE: 20151217
